FAERS Safety Report 7797354-5 (Version None)
Quarter: 2011Q4

REPORT INFORMATION
  Report Type: 
  Country: None (occurrence: None)
  Receive Date: 20111005
  Receipt Date: 20110927
  Transmission Date: 20120403
  Serious: No
  Sender: FDA-Public Use
  Company Number: US-RB-031769-11

PATIENT
  Age: 59 Year
  Sex: Female

DRUGS (3)
  1. SUBOXONE [Suspect]
     Indication: DRUG DEPENDENCE
     Dosage: SUBLINGUAL FILM
     Route: 060
     Dates: start: 20110801
  2. DIURETIC [Concomitant]
     Indication: HYPERTENSION
     Dosage: DAILY DOSING REGIMEN UNSPECIFIED
     Route: 065
     Dates: start: 20110801
  3. BLOOD PRESURE MEDICATION (NAMES UNKNOWN) ^2^ [Concomitant]
     Indication: HYPERTENSION
     Dosage: DAILY DOSING REGIMEN - UNSPECIFIED
     Route: 065
     Dates: start: 20110801

REACTIONS (1)
  - WRIST FRACTURE [None]
